FAERS Safety Report 6375154-0 (Version None)
Quarter: 2009Q3

REPORT INFORMATION
  Report Type: 
  Country: None (occurrence: None)
  Receive Date: 20090921
  Receipt Date: 20090910
  Transmission Date: 20100115
  Serious: No
  Sender: FDA-Public Use
  Company Number: 2009010317

PATIENT

DRUGS (2)
  1. FENTORA [Suspect]
     Indication: CANCER PAIN
     Dosage: 4800 MCG (800 MCG,6 IN 1 D),BUCCAL; (400 MCG, 6-8 TIMES PRN), BU
     Route: 002
  2. MS CONTIN [Concomitant]

REACTIONS (1)
  - DRUG PRESCRIBING ERROR [None]
